FAERS Safety Report 16498407 (Version 1)
Quarter: 2019Q2

REPORT INFORMATION
  Report Type: Report from Study
  Country: None (occurrence: US)
  Receive Date: 20190629
  Receipt Date: 20190629
  Transmission Date: 20190711
  Serious: Yes (Other)
  Sender: FDA-Public Use
  Company Number: US-ABBVIE-19K-163-2833079-00

PATIENT
  Age: 70 Year
  Sex: Male
  Weight: 64.92 kg

DRUGS (1)
  1. VENETOCLAX. [Suspect]
     Active Substance: VENETOCLAX
     Indication: PLASMA CELL MYELOMA
     Route: 048
     Dates: start: 2019

REACTIONS (5)
  - Skin laceration [Recovered/Resolved]
  - Loss of consciousness [Recovered/Resolved]
  - Intentional product use issue [Unknown]
  - Fall [Unknown]
  - Blood count abnormal [Recovered/Resolved]

NARRATIVE: CASE EVENT DATE: 2019
